FAERS Safety Report 4330541-7 (Version None)
Quarter: 2004Q2

REPORT INFORMATION
  Report Type: 
  Country: None (occurrence: None)
  Receive Date: 20040401
  Receipt Date: 20040401
  Transmission Date: 20050107
  Serious: Yes (Other)
  Sender: FDA-Public Use
  Company Number: None

PATIENT
  Age: 69 Year
  Sex: Male
  Weight: 76.2 kg

DRUGS (13)
  1. WARFARIN SODIUM [Suspect]
     Indication: ARTERIAL BYPASS OPERATION
     Dosage: ORAL
     Route: 048
  2. CALCIUM 250MG/VITAMIN D [Concomitant]
  3. BISACODYL [Concomitant]
  4. NAPROXEN [Concomitant]
  5. PENTOXIFYLLINE [Concomitant]
  6. AMITRIPTYLINE HCL [Concomitant]
  7. ATENOLOL [Concomitant]
  8. ASPIRIN [Concomitant]
  9. CODEINE 30/ACETAMINOPHEN [Concomitant]
  10. DM 10/GUIFENESIN [Concomitant]
  11. FEXOFENADINE HCL [Concomitant]
  12. MULTIVITAMIN/MINERALS THERAPEUT CAP/TAB [Concomitant]
  13. ALBUTEROL [Concomitant]

REACTIONS (1)
  - INTERNATIONAL NORMALISED RATIO INCREASED [None]
